FAERS Safety Report 12885702 (Version 3)
Quarter: 2016Q4

REPORT INFORMATION
  Report Type: Spontaneous
  Country: JP (occurrence: JP)
  Receive Date: 20161026
  Receipt Date: 20161102
  Transmission Date: 20170207
  Serious: Yes (Death, Hospitalization)
  Sender: FDA-Public Use
  Company Number: PHJP2015JP003838

PATIENT
  Sex: Male

DRUGS (3)
  1. OMEPRAL [Suspect]
     Active Substance: OMEPRAZOLE
     Indication: GASTRIC ULCER
     Dosage: 20 MG, QD
     Route: 048
     Dates: start: 201402
  2. GLIVEC [Suspect]
     Active Substance: IMATINIB MESYLATE
     Indication: GASTROINTESTINAL STROMAL TUMOUR
     Dosage: 400 MG, QD
     Route: 048
     Dates: start: 201103
  3. GLIVEC [Suspect]
     Active Substance: IMATINIB MESYLATE
     Dosage: 400 MG, QD
     Route: 048

REACTIONS (8)
  - Eye discharge [Recovered/Resolved]
  - Eye swelling [Recovered/Resolved]
  - Non-small cell lung cancer [Fatal]
  - Nausea [Recovering/Resolving]
  - Gastric ulcer [Unknown]
  - Breast pain [Not Recovered/Not Resolved]
  - Second primary malignancy [Fatal]
  - Breast swelling [Not Recovered/Not Resolved]

NARRATIVE: CASE EVENT DATE: 201203
